FAERS Safety Report 19641598 (Version 1)
Quarter: 2021Q3

REPORT INFORMATION
  Report Type: Report from Study
  Country: CO (occurrence: CO)
  Receive Date: 20210731
  Receipt Date: 20210731
  Transmission Date: 20211014
  Serious: Yes (Other)
  Sender: FDA-Public Use
  Company Number: NVSC2021CO150656

PATIENT
  Age: 43 Year
  Sex: Female
  Weight: 55 kg

DRUGS (4)
  1. COSENTYX [Suspect]
     Active Substance: SECUKINUMAB
     Indication: PSORIASIS
     Dosage: 150 MG, Q3MO
     Route: 058
  2. COSENTYX [Suspect]
     Active Substance: SECUKINUMAB
     Dosage: 150 MG, QMO
     Route: 058
  3. LEVOTHYROXINE. [Concomitant]
     Active Substance: LEVOTHYROXINE
     Indication: HYPOTHYROIDISM
     Dosage: 50 MG, QD
     Route: 048
  4. DAIVOBET [Concomitant]
     Active Substance: BETAMETHASONE DIPROPIONATE\CALCIPOTRIENE
     Indication: PSORIASIS
     Dosage: UNK UNK, BID
     Route: 061

REACTIONS (9)
  - Hypersensitivity [Unknown]
  - Scar [Unknown]
  - Scab [Unknown]
  - Blister [Recovered/Resolved]
  - Skin lesion [Recovered/Resolved]
  - Psoriasis [Unknown]
  - Inappropriate schedule of product administration [Unknown]
  - Leprosy [Recovered/Resolved]
  - Skin wound [Unknown]

NARRATIVE: CASE EVENT DATE: 202010
